FAERS Safety Report 4979202-1 (Version None)
Quarter: 2006Q2

REPORT INFORMATION
  Report Type: 
  Country: None (occurrence: None)
  Receive Date: 20060421
  Receipt Date: 20060414
  Transmission Date: 20061013
  Serious: Yes (Disabling)
  Sender: FDA-Public Use
  Company Number: JP-GLAXOSMITHKLINE-B0420615A

PATIENT
  Age: 10 Year
  Sex: Female
  Weight: 27 kg

DRUGS (26)
  1. ALKERAN [Suspect]
     Indication: STEM CELL TRANSPLANT
     Route: 042
     Dates: start: 20060218, end: 20060226
  2. THIOTEPA [Suspect]
     Dates: start: 20060218, end: 20060226
  3. MORPHINE [Suspect]
     Dates: start: 20060226, end: 20060323
  4. GRAN [Concomitant]
     Dates: start: 20060303, end: 20060315
  5. KYTRIL [Concomitant]
     Route: 042
     Dates: start: 20060218, end: 20060302
  6. DIFLUCAN [Concomitant]
     Route: 048
     Dates: start: 20050922, end: 20060303
  7. POLYMYXIN B SULFATE [Concomitant]
     Route: 048
     Dates: start: 20050922
  8. NEUQUINON [Concomitant]
     Route: 048
     Dates: start: 20050915
  9. MIYA BM [Concomitant]
     Route: 048
     Dates: start: 20050922, end: 20060228
  10. JUVELA [Concomitant]
     Route: 048
     Dates: start: 20050916, end: 20060303
  11. URSO [Concomitant]
     Route: 048
     Dates: start: 20060218
  12. CRAVIT [Concomitant]
     Route: 048
     Dates: start: 20060218
  13. GASTER [Concomitant]
     Dates: start: 20060225, end: 20060315
  14. CARBENIN [Concomitant]
     Route: 042
     Dates: start: 20060227, end: 20060303
  15. AMIKACIN SULFATE [Concomitant]
     Dates: start: 20060227, end: 20060303
  16. ADSORBIN [Concomitant]
     Route: 048
     Dates: start: 20060225, end: 20060228
  17. FLORID [Concomitant]
     Route: 048
     Dates: start: 20060301
  18. PRIMPERAN TAB [Concomitant]
     Dates: start: 20060228, end: 20060316
  19. ATARAX [Concomitant]
     Dates: start: 20060302, end: 20060302
  20. PRODIF [Concomitant]
     Route: 042
     Dates: start: 20060303, end: 20060313
  21. MEROPEN [Concomitant]
     Route: 042
     Dates: start: 20060303, end: 20060310
  22. TARGOCID [Concomitant]
     Route: 042
     Dates: start: 20060303, end: 20060309
  23. ALBUMIN [Concomitant]
     Route: 042
     Dates: start: 20060306, end: 20060311
  24. NEUART [Concomitant]
     Route: 042
     Dates: start: 20060310, end: 20060310
  25. FIRSTCIN [Concomitant]
     Route: 042
     Dates: start: 20060310, end: 20060318
  26. HABEKACIN [Concomitant]
     Dates: start: 20060310, end: 20060318

REACTIONS (4)
  - ABDOMINAL DISTENSION [None]
  - ABDOMINAL PAIN [None]
  - ILEUS [None]
  - STOMATITIS [None]
